FAERS Safety Report 19647131 (Version 2)
Quarter: 2021Q3

REPORT INFORMATION
  Report Type: Spontaneous
  Country: GR (occurrence: GR)
  Receive Date: 20210802
  Receipt Date: 20210817
  Transmission Date: 20211014
  Serious: Yes (Life-Threatening, Hospitalization, Other)
  Sender: FDA-Public Use
  Company Number: GR-PFIZER INC-202100914325

PATIENT
  Sex: Female
  Weight: 2.63 kg

DRUGS (2)
  1. LEVETIRACETAM. [Suspect]
     Active Substance: LEVETIRACETAM
     Indication: EPILEPSY
     Dosage: UNK
     Route: 064
  2. LAMOTRIGINE. [Suspect]
     Active Substance: LAMOTRIGINE
     Indication: EPILEPSY
     Dosage: UNK
     Route: 064

REACTIONS (6)
  - Infantile apnoea [Recovered/Resolved]
  - Hypotonia neonatal [Recovered/Resolved]
  - Maternal exposure during pregnancy [Unknown]
  - Hydrops foetalis [Recovered/Resolved]
  - Neonatal respiratory distress syndrome [Recovered/Resolved]
  - Cyanosis neonatal [Recovered/Resolved]
